FAERS Safety Report 9210545 (Version 1)
Quarter: 2013Q2

REPORT INFORMATION
  Report Type: Spontaneous
  Country: US (occurrence: US)
  Receive Date: 20130404
  Receipt Date: 20130404
  Transmission Date: 20140414
  Serious: No
  Sender: FDA-Public Use
  Company Number: US-PFIZER INC-2013104485

PATIENT
  Sex: Female

DRUGS (1)
  1. ADVIL GELCAPS [Suspect]
     Indication: ACNE
     Dosage: UNK
     Route: 061

REACTIONS (3)
  - Accidental exposure to product [Recovered/Resolved]
  - Eye pain [Recovered/Resolved]
  - Off label use [Unknown]
